FAERS Safety Report 4563098-6 (Version None)
Quarter: 2005Q1

REPORT INFORMATION
  Report Type: 
  Country: None (occurrence: None)
  Receive Date: 20050125
  Receipt Date: 20050112
  Transmission Date: 20050727
  Serious: No
  Sender: FDA-Public Use
  Company Number: 05H-062-0286546

PATIENT

DRUGS (6)
  1. HEPARIN SODIUM [Suspect]
     Indication: ANTICOAGULANT THERAPY
     Dosage: 80 IU/KG ,DAY 1,BOLUS
  2. HEPARIN SODIUM [Suspect]
     Indication: ANTICOAGULANT THERAPY
     Dosage: 18 IU/KG/H  DAY1
  3. ACETYLSALICYLIC ACID SRT [Concomitant]
  4. TICLOPIDIEN [Concomitant]
  5. CLOPIDOGREL [Concomitant]
  6. OTHERA ORAL ANTICOAGULANTS [Concomitant]

REACTIONS (1)
  - CEREBRAL ISCHAEMIA [None]
